FAERS Safety Report 23701235 (Version 1)
Quarter: 2024Q2

REPORT INFORMATION
  Report Type: Spontaneous
  Country: US (occurrence: None)
  Receive Date: 20240402
  Receipt Date: 20240402
  Transmission Date: 20240715
  Serious: No
  Sender: FDA-Public Use
  Company Number: None

PATIENT
  Age: 72 Year
  Sex: Female

DRUGS (1)
  1. BOSENTAN [Suspect]
     Active Substance: BOSENTAN
     Indication: Pulmonary hypertension
     Dosage: 125MG BID ORAL?
     Route: 048
     Dates: start: 20190610, end: 20240315

REACTIONS (6)
  - Dyspnoea [None]
  - Palpitations [None]
  - Fatigue [None]
  - Oedema peripheral [None]
  - Hypoxia [None]
  - Aneurysm [None]

NARRATIVE: CASE EVENT DATE: 20240402
